FAERS Safety Report 23524657 (Version 1)
Quarter: 2024Q1

REPORT INFORMATION
  Report Type: Spontaneous
  Country: CA (occurrence: CA)
  Receive Date: 20240215
  Receipt Date: 20240215
  Transmission Date: 20240409
  Serious: Yes (Other)
  Sender: FDA-Public Use
  Company Number: CA-CELLTRION INC.-2024CA003127

PATIENT

DRUGS (1)
  1. RITUXIMAB [Suspect]
     Active Substance: RITUXIMAB
     Indication: Product used for unknown indication
     Route: 065

REACTIONS (6)
  - Diabetes mellitus [Unknown]
  - Fall [Unknown]
  - Gait disturbance [Unknown]
  - Speech disorder [Unknown]
  - Asthenia [Unknown]
  - Herpes zoster [Unknown]
